FAERS Safety Report 4681307-X (Version None)
Quarter: 2005Q2

REPORT INFORMATION
  Report Type: 
  Country: None (occurrence: None)
  Receive Date: 20050602
  Receipt Date: 20050602
  Transmission Date: 20051028
  Serious: No
  Sender: FDA-Public Use
  Company Number: None

PATIENT
  Age: 69 Year
  Sex: Female
  Weight: 74.8435 kg

DRUGS (2)
  1. AMIRIDIX [Suspect]
     Indication: BREAST CANCER
     Dosage: ORAL
     Route: 048
     Dates: start: 20040803, end: 20041115
  2. TAMOXIFEN CITRATE [Concomitant]

REACTIONS (1)
  - BLOOD PRESSURE INCREASED [None]
